FAERS Safety Report 8484445-9 (Version None)
Quarter: 2012Q3

REPORT INFORMATION
  Report Type: 
  Country: None (occurrence: None)
  Receive Date: 20120703
  Receipt Date: 20120625
  Transmission Date: 20120928
  Serious: Yes (Hospitalization)
  Sender: FDA-Public Use
  Company Number: US-ACTELION-A-US2011-45937

PATIENT

DRUGS (2)
  1. TRACLEER [Suspect]
     Indication: PULMONARY ARTERIAL HYPERTENSION
     Dosage: UNK
     Route: 048
     Dates: start: 20110114
  2. CALCIUM CHANNEL BLOCKERS [Concomitant]

REACTIONS (4)
  - FLUSHING [None]
  - CONSTIPATION [None]
  - DEHYDRATION [None]
  - HEADACHE [None]
